FAERS Safety Report 10810580 (Version 1)
Quarter: 2015Q1

REPORT INFORMATION
  Report Type: Spontaneous
  Country: US (occurrence: None)
  Receive Date: 20150212
  Receipt Date: 20150212
  Transmission Date: 20150721
  Serious: Yes (Congenital Anomaly)
  Sender: FDA-Public Use
  Company Number: 2013HINSPO0209

PATIENT

DRUGS (3)
  1. RITONAVIR (NORVIR RTV) [Concomitant]
  2. TENOFOVIR (TENOFOVIR) UNKNOWN [Suspect]
     Active Substance: TENOFOVIR
     Indication: PRODUCT USED FOR UNKNOWN INDICATION
     Dosage: 1 COURSE, TRANSPLACENTAL
     Route: 064
  3. DARUNAVIR (PREZISTA DRV) [Concomitant]

REACTIONS (2)
  - Foetal exposure during pregnancy [None]
  - Ventricular septal defect [None]
